FAERS Safety Report 6105901-4 (Version None)
Quarter: 2009Q1

REPORT INFORMATION
  Report Type: 
  Country: None (occurrence: None)
  Receive Date: 20090306
  Receipt Date: 20090227
  Transmission Date: 20090719
  Serious: Yes (Other)
  Sender: FDA-Public Use
  Company Number: A0544328A

PATIENT
  Age: 48 Year
  Sex: Male
  Weight: 74.8 kg

DRUGS (4)
  1. TOSITUMOMAB [Suspect]
     Indication: NON-HODGKIN'S LYMPHOMA
     Route: 042
     Dates: start: 19960726, end: 19960726
  2. IODINE I 131 TOSITUMOMAB [Suspect]
     Indication: NON-HODGKIN'S LYMPHOMA
     Route: 042
     Dates: start: 19960726, end: 19960726
  3. TOSITUMOMAB [Suspect]
     Route: 042
     Dates: start: 19960809, end: 19960809
  4. IODINE I 131 TOSITUMOMAB [Suspect]
     Route: 042
     Dates: start: 19960809, end: 19960809

REACTIONS (1)
  - LIP AND/OR ORAL CAVITY CANCER [None]
